FAERS Safety Report 7121143-8 (Version None)
Quarter: 2010Q4

REPORT INFORMATION
  Report Type: 
  Country: None (occurrence: None)
  Receive Date: 20101124
  Receipt Date: 20101118
  Transmission Date: 20110411
  Serious: Yes (Other)
  Sender: FDA-Public Use
  Company Number: US-US-EMD SERONO, INC.-7008231

PATIENT
  Sex: Female
  Weight: 113 kg

DRUGS (9)
  1. REBIF [Suspect]
     Indication: MULTIPLE SCLEROSIS
     Route: 058
     Dates: start: 20100512, end: 20100101
  2. REBIF [Suspect]
     Route: 058
     Dates: start: 20100101, end: 20100101
  3. REBIF [Suspect]
     Route: 058
     Dates: start: 20100101
  4. COUMADIN [Suspect]
     Indication: ANTICOAGULANT THERAPY
     Dates: start: 20090601
  5. COUMADIN [Suspect]
     Indication: THROMBOSIS
     Route: 048
     Dates: start: 20090601
  6. POTASSIUM CHLORIDE [Concomitant]
     Indication: BLOOD POTASSIUM DECREASED
     Route: 048
  7. HYDROCHLOROTHIAZIDE [Concomitant]
     Indication: HYPERTENSION
  8. SYNTHROID [Concomitant]
     Indication: HYPOTHYROIDISM
     Dates: start: 19960101
  9. UNSPECIFIED MEDICATIONS [Concomitant]

REACTIONS (6)
  - ABDOMINAL DISCOMFORT [None]
  - CHEST DISCOMFORT [None]
  - INJECTION SITE ERYTHEMA [None]
  - INTERNATIONAL NORMALISED RATIO ABNORMAL [None]
  - MUSCULAR WEAKNESS [None]
  - PROTHROMBIN TIME ABNORMAL [None]
